FAERS Safety Report 10109261 (Version 1)
Quarter: 2014Q2

REPORT INFORMATION
  Report Type: Spontaneous
  Country: CA (occurrence: CA)
  Receive Date: 20140425
  Receipt Date: 20140425
  Transmission Date: 20141212
  Serious: Yes (Disabling)
  Sender: FDA-Public Use
  Company Number: CA-ROCHE-1389671

PATIENT
  Age: 42 Year
  Sex: Female
  Weight: 64 kg

DRUGS (13)
  1. TORADOL [Suspect]
     Indication: PRODUCT USED FOR UNKNOWN INDICATION
     Dosage: 10 MG/ML
     Route: 030
  2. PROCHLORPERAZINE [Suspect]
     Indication: PRODUCT USED FOR UNKNOWN INDICATION
     Route: 042
  3. ACETAMINOPHEN [Concomitant]
     Route: 065
  4. COLACE [Concomitant]
     Route: 065
  5. CYCLOBENZAPRINE [Concomitant]
  6. DEXILANT [Concomitant]
     Route: 065
  7. DILAUDID [Concomitant]
  8. DUVOID [Concomitant]
  9. HYDROMORPH CONTIN [Concomitant]
     Route: 065
  10. OXAZEPAM [Concomitant]
  11. PREDNISONE [Concomitant]
     Route: 065
  12. RESOTRAN [Concomitant]
     Dosage: RESOTRAN FILM-COATED
     Route: 065
  13. SUMATRIPTAN [Concomitant]
     Route: 065

REACTIONS (1)
  - Paralysis [Recovered/Resolved]
